FAERS Safety Report 4916661-4 (Version None)
Quarter: 2006Q1

REPORT INFORMATION
  Report Type: 
  Country: None (occurrence: None)
  Receive Date: 20060220
  Receipt Date: 20041207
  Transmission Date: 20060701
  Serious: Yes (Life-Threatening)
  Sender: FDA-Public Use
  Company Number: GB-SOLVAY-00204004311

PATIENT
  Age: 74 Year
  Sex: Male

DRUGS (9)
  1. COVERSYL [Interacting]
     Indication: HYPERTENSION
     Dosage: DAILY DOSE: 2 MILLIGRAM(S)
     Route: 048
     Dates: start: 20031201, end: 20040101
  2. COVERSYL [Interacting]
     Dosage: DAILY DOSE: 4 MILLIGRAM(S)
     Route: 048
     Dates: start: 20040101, end: 20040501
  3. COVERSYL [Interacting]
     Dosage: DAILY DOSE: 6 MILLIGRAM(S)
     Route: 048
     Dates: start: 20040501
  4. AMLODIPINE [Concomitant]
     Indication: ILL-DEFINED DISORDER
     Dosage: DAILY DOSE: 10 MILLIGRAM(S)
     Route: 048
  5. ASPIRIN [Concomitant]
     Indication: ILL-DEFINED DISORDER
     Dosage: DAILY DOSE: 75 MILLIGRAM(S)
     Route: 048
  6. MYOCRISIN [Suspect]
     Indication: RHEUMATOID ARTHRITIS
     Dosage: 50 MILLIGRAMS MONTHLY.
     Route: 030
     Dates: start: 19820101, end: 20041108
  7. SIMVASTATIN [Concomitant]
     Indication: ILL-DEFINED DISORDER
     Dosage: DAILY DOSE: 20 MILLIGRAM(S)
     Route: 048
  8. OMEPRAZOLE [Concomitant]
     Indication: ILL-DEFINED DISORDER
     Dosage: DAILY DOSE: 20 MILLIGRAM(S)
     Route: 048
  9. CELEBREX [Concomitant]
     Indication: ILL-DEFINED DISORDER
     Dosage: DAILY DOSE: 200 MILLIGRAM(S)
     Route: 048

REACTIONS (7)
  - ACCIDENT [None]
  - BRADYCARDIA [None]
  - CHEST PAIN [None]
  - DRUG INTERACTION [None]
  - HYPOTENSION [None]
  - LOSS OF CONSCIOUSNESS [None]
  - NITRITOID CRISIS [None]
